FAERS Safety Report 11732939 (Version 1)
Quarter: 2015Q4

REPORT INFORMATION
  Report Type: Spontaneous
  Country: US (occurrence: US)
  Receive Date: 20151110
  Receipt Date: 20151110
  Transmission Date: 20160304
  Serious: No
  Sender: FDA-Public Use
  Company Number: US-ELI_LILLY_AND_COMPANY-US201201000284

PATIENT
  Sex: Female

DRUGS (3)
  1. FORTEO [Suspect]
     Active Substance: TERIPARATIDE
     Dosage: 20 UG, QD
     Route: 065
     Dates: start: 201201
  2. FORTEO [Suspect]
     Active Substance: TERIPARATIDE
     Dosage: 20 UG, QD
     Route: 065
     Dates: end: 2009
  3. FORTEO [Suspect]
     Active Substance: TERIPARATIDE
     Indication: OSTEOPOROSIS
     Dosage: 20 UG, QD
     Route: 065
     Dates: start: 2007

REACTIONS (13)
  - Rib fracture [Not Recovered/Not Resolved]
  - Feeling abnormal [Unknown]
  - Fear [Unknown]
  - Intentional product misuse [Unknown]
  - Faecal incontinence [Unknown]
  - Gastric dilatation [Recovered/Resolved]
  - Gait disturbance [Recovering/Resolving]
  - Bone density decreased [Unknown]
  - Abdominal distension [Unknown]
  - Colitis microscopic [Not Recovered/Not Resolved]
  - Hypoacusis [Unknown]
  - Diarrhoea [Not Recovered/Not Resolved]
  - Dizziness [Recovering/Resolving]

NARRATIVE: CASE EVENT DATE: 2011
